FAERS Safety Report 5974973-X (Version None)
Quarter: 2008Q4

REPORT INFORMATION
  Report Type: 
  Country: None (occurrence: None)
  Receive Date: 20081201
  Receipt Date: 20081117
  Transmission Date: 20090506
  Serious: Yes (Other)
  Sender: FDA-Public Use
  Company Number: 20599

PATIENT
  Age: 15 Year
  Sex: Male

DRUGS (9)
  1. CYTARABINE [Suspect]
     Indication: ACUTE LYMPHOCYTIC LEUKAEMIA RECURRENT
  2. FLUDARABINE PHOSPHATE [Suspect]
     Indication: ACUTE LYMPHOCYTIC LEUKAEMIA RECURRENT
  3. METHOTREXATE [Suspect]
     Indication: ACUTE LYMPHOCYTIC LEUKAEMIA RECURRENT
  4. TOPOTECAN [Suspect]
     Indication: ACUTE LYMPHOCYTIC LEUKAEMIA RECURRENT
  5. THIOTEPA [Suspect]
     Indication: ACUTE LYMPHOCYTIC LEUKAEMIA RECURRENT
  6. MELPHALAN [Suspect]
     Indication: ACUTE LYMPHOCYTIC LEUKAEMIA RECURRENT
  7. OKT3 ANTIBODIES [Suspect]
     Indication: ACUTE LYMPHOCYTIC LEUKAEMIA RECURRENT
  8. HYDROCORTISONE [Concomitant]
  9. CRANIAL IRRADIATION [Concomitant]

REACTIONS (19)
  - ANTI-GAD ANTIBODY POSITIVE [None]
  - AREFLEXIA [None]
  - ATROPHY [None]
  - AXONAL NEUROPATHY [None]
  - BONE MARROW TRANSPLANT [None]
  - CSF MYELIN BASIC PROTEIN INCREASED [None]
  - CSF PROTEIN INCREASED [None]
  - CSF WHITE BLOOD CELL COUNT POSITIVE [None]
  - DRUG TOXICITY [None]
  - IMMUNE SYSTEM DISORDER [None]
  - LEUKOENCEPHALOPATHY [None]
  - MICTURITION URGENCY [None]
  - MONOPLEGIA [None]
  - MUSCLE SPASMS [None]
  - MUSCULAR WEAKNESS [None]
  - MYELOPATHY [None]
  - NEUROLOGICAL DECOMPENSATION [None]
  - SPINAL CORD DISORDER [None]
  - SURGICAL PROCEDURE REPEATED [None]
